FAERS Safety Report 6959645-7 (Version None)
Quarter: 2010Q3

REPORT INFORMATION
  Report Type: 
  Country: None (occurrence: None)
  Receive Date: 20100827
  Receipt Date: 20100813
  Transmission Date: 20110219
  Serious: Yes (Other)
  Sender: FDA-Public Use
  Company Number: TPA2010A04481

PATIENT
  Age: 79 Year
  Sex: Female

DRUGS (15)
  1. ADENURIC (FEBUXOSTAT) [Suspect]
     Indication: GOUT
     Dosage: 80 MG, 1 IN 1 D, PER ORAL
     Route: 048
     Dates: start: 20100421, end: 20100510
  2. MIXTARD HUMAN 70/30 [Concomitant]
  3. GABAPENTIN [Concomitant]
  4. CLOPIDOGREL [Concomitant]
  5. MESALAMINE [Concomitant]
  6. DIGOXIN [Concomitant]
  7. CODEINE PHOSPHATE AND ACETAMINOPHEN [Concomitant]
  8. CANDESARTAN CILEXETIL [Concomitant]
  9. QUININE SULPHATE (QUININE SULFATE) [Concomitant]
  10. TOLTERODINE TARTRATE [Concomitant]
  11. OMEPRAZOLE [Concomitant]
  12. TEMAZEPAM [Concomitant]
  13. PREDNISONE [Concomitant]
  14. MATRIFEN (CLOPIDOGREL) [Concomitant]
  15. CALCIUM CARBONATE [Concomitant]

REACTIONS (2)
  - CONDITION AGGRAVATED [None]
  - SKIN ULCER [None]
